FAERS Safety Report 7465862-2 (Version None)
Quarter: 2011Q2

REPORT INFORMATION
  Report Type: 
  Country: None (occurrence: None)
  Receive Date: 20110509
  Receipt Date: 20101116
  Transmission Date: 20111010
  Serious: No
  Sender: FDA-Public Use
  Company Number: US-SANOFI-AVENTIS-2010SA072910

PATIENT
  Age: 82 Year
  Sex: Female

DRUGS (4)
  1. LANTUS [Suspect]
     Indication: TYPE 2 DIABETES MELLITUS
     Dates: start: 20101108
  2. APIDRA [Suspect]
     Indication: TYPE 2 DIABETES MELLITUS
     Dosage: DOSE : 6,3,6 TID
     Route: 058
     Dates: start: 20101108
  3. LANTUS [Concomitant]
     Indication: TYPE 2 DIABETES MELLITUS
     Dosage: DOSE:10 UNIT(S)
     Route: 058
  4. SOLOSTAR [Concomitant]

REACTIONS (3)
  - PRODUCT QUALITY ISSUE [None]
  - INJECTION SITE HAEMATOMA [None]
  - INJECTION SITE INJURY [None]
